FAERS Safety Report 8916516 (Version 4)
Quarter: 2013Q1

REPORT INFORMATION
  Report Type: Spontaneous
  Country: US (occurrence: US)
  Receive Date: 20121120
  Receipt Date: 20130219
  Transmission Date: 20140127
  Serious: Yes (Hospitalization, Other)
  Sender: FDA-Public Use
  Company Number: US-009507513-1211USA007132

PATIENT
  Age: 61 None
  Sex: Female

DRUGS (7)
  1. PEG-INTRON [Suspect]
     Indication: HEPATITIS C
     Dosage: REDIPEN
     Dates: start: 20121104, end: 20121108
  2. PEG-INTRON [Suspect]
     Dosage: UNK
     Dates: start: 20100401
  3. PEG-INTRON [Suspect]
     Dosage: UNK
     Dates: start: 20121118
  4. RIBAVIRIN [Suspect]
     Indication: HEPATITIS C
     Dosage: UNK
     Route: 048
     Dates: start: 20121104, end: 20121108
  5. RIBAVIRIN [Suspect]
     Dosage: UNK
     Route: 048
     Dates: start: 20100401
  6. RIBAVIRIN [Suspect]
     Dosage: UNK
     Route: 048
     Dates: start: 20121118
  7. VICTRELIS [Suspect]
     Indication: HEPATITIS C
     Dosage: UNK
     Route: 048
     Dates: start: 20121209

REACTIONS (20)
  - Vomiting [Unknown]
  - Dyspnoea [Unknown]
  - Diarrhoea [Unknown]
  - Vomiting [Unknown]
  - Diarrhoea [Unknown]
  - Disorientation [Unknown]
  - Anaemia [Unknown]
  - Hypokalaemia [Unknown]
  - Drug ineffective [Unknown]
  - Dyspnoea [Unknown]
  - White blood cell count decreased [Unknown]
  - Confusional state [Unknown]
  - Platelet count decreased [Unknown]
  - Hypertension [Unknown]
  - Hypokalaemia [Unknown]
  - Fatigue [Unknown]
  - Leukopenia [Unknown]
  - White blood cell count decreased [Unknown]
  - White blood cell count decreased [Unknown]
  - Weight increased [Unknown]
